FAERS Safety Report 7293767-9 (Version None)
Quarter: 2011Q1

REPORT INFORMATION
  Report Type: 
  Country: None (occurrence: None)
  Receive Date: 20110202
  Receipt Date: 20110117
  Transmission Date: 20110831
  Serious: Yes (Other)
  Sender: FDA-Public Use
  Company Number: JPI-P-013551

PATIENT
  Age: 66 Year
  Sex: Female

DRUGS (1)
  1. XYREM [Suspect]
     Indication: FIBROMYALGIA
     Dosage: 6 GM (3 GM,2 IN 1 D), ORAL
     Route: 048
     Dates: start: 20100121

REACTIONS (1)
  - CONVULSION [None]
